FAERS Safety Report 7957432-4 (Version None)
Quarter: 2011Q4

REPORT INFORMATION
  Report Type: 
  Country: None (occurrence: None)
  Receive Date: 20111130
  Receipt Date: 20111118
  Transmission Date: 20120403
  Serious: Yes (Life-Threatening)
  Sender: FDA-Public Use
  Company Number: EU-2011-10266

PATIENT
  Age: 78 Year
  Sex: Male

DRUGS (3)
  1. ASPIRIN [Concomitant]
  2. OMEPRAZOLE [Concomitant]
  3. PLETAL [Suspect]
     Indication: ARTHROPATHY
     Dosage: 300 MG MILLIGRAM(S), DAILY DOSE, ORAL
     Route: 048
     Dates: start: 20111020, end: 20111020

REACTIONS (2)
  - MULTI-ORGAN FAILURE [None]
  - INTRAVASCULAR HAEMOLYSIS [None]
